FAERS Safety Report 15277056 (Version 1)
Quarter: 2018Q3

REPORT INFORMATION
  Report Type: Spontaneous
  Country: FR (occurrence: FR)
  Receive Date: 20180814
  Receipt Date: 20180814
  Transmission Date: 20181010
  Serious: Yes (Death)
  Sender: FDA-Public Use
  Company Number: FR-PFIZER INC-2018322716

PATIENT
  Age: 67 Year
  Sex: Female

DRUGS (2)
  1. DOXORUBICIN HCL [Suspect]
     Active Substance: DOXORUBICIN HYDROCHLORIDE
     Indication: SARCOMA
     Dosage: 84 MG, EVERY 15 DAYS
     Route: 042
     Dates: start: 20131127, end: 20140108
  2. IFOSFAMIDE. [Interacting]
     Active Substance: IFOSFAMIDE
     Indication: SARCOMA
     Dosage: 10620 MG, EVERY 15 DAYS
     Route: 042
     Dates: start: 20131127, end: 20140108

REACTIONS (4)
  - Haemoptysis [Fatal]
  - Thrombocytopenia [Fatal]
  - Anaemia [Fatal]
  - Drug interaction [Unknown]

NARRATIVE: CASE EVENT DATE: 20140117
